FAERS Safety Report 10224738 (Version 1)
Quarter: 2014Q2

REPORT INFORMATION
  Report Type: Not Available
  Country: AU (occurrence: AU)
  Receive Date: 20140609
  Receipt Date: 20140609
  Transmission Date: 20141212
  Serious: Yes (Hospitalization)
  Sender: FDA-Public Use
  Company Number: AU-NAPPMUNDI-GBR-2014-0018584

PATIENT
  Age: 75 Year
  Sex: Male

DRUGS (14)
  1. MORPHINE SULFATE [Suspect]
     Indication: PAIN
     Dosage: 20 MG, Q4H
     Route: 048
  2. MORPHINE SULFATE [Suspect]
     Dosage: 10 MG, PRN
  3. OXYCODONE HYDROCHLORIDE [Suspect]
     Indication: PAIN
     Route: 058
  4. FENTANYL [Suspect]
     Indication: PAIN
     Dosage: UNK
  5. NAPROXEN [Suspect]
     Indication: PAIN
     Dosage: 500 MG, BID
     Route: 065
  6. BISACODYL [Concomitant]
  7. DOCUSATE SODIUM [Concomitant]
  8. HALOPERIDOL [Concomitant]
  9. IBUPROFEN [Concomitant]
  10. LACTULOSE [Concomitant]
  11. LORAZEPAM [Concomitant]
  12. MIDAZOLAM [Concomitant]
  13. PARACETAMOL WITH CODEINE PHOSPHATE [Concomitant]
  14. SENNA                              /00142201/ [Concomitant]

REACTIONS (9)
  - Delirium [Unknown]
  - Abnormal behaviour [Unknown]
  - Weight decreased [Unknown]
  - Abdominal distension [Unknown]
  - Decreased appetite [Unknown]
  - Confusional state [Unknown]
  - Nausea [Unknown]
  - Constipation [Unknown]
  - Vomiting [Unknown]
